FAERS Safety Report 20256179 (Version 3)
Quarter: 2022Q1

REPORT INFORMATION
  Report Type: Report from Study
  Country: US (occurrence: US)
  Receive Date: 20211230
  Receipt Date: 20220118
  Transmission Date: 20220423
  Serious: Yes (Hospitalization)
  Sender: FDA-Public Use
  Company Number: US-ABBVIE-21K-163-4203282-00

PATIENT
  Age: 79 Year
  Sex: Male
  Weight: 74.910 kg

DRUGS (19)
  1. DUOPA [Suspect]
     Active Substance: CARBIDOPA\LEVODOPA
     Indication: Parkinson^s disease
     Route: 050
     Dates: start: 20211022, end: 2021
  2. DUOPA [Suspect]
     Active Substance: CARBIDOPA\LEVODOPA
     Route: 050
     Dates: start: 20211102
  3. CILOSTAZOL [Concomitant]
     Active Substance: CILOSTAZOL
     Indication: Peripheral arterial occlusive disease
     Dosage: 100MG
     Route: 048
  4. NORVASC [Concomitant]
     Active Substance: AMLODIPINE BESYLATE
     Indication: Hypertension
     Dosage: 5MG
     Route: 048
  5. ASPIRIN [Concomitant]
     Active Substance: ASPIRIN
     Indication: Anticoagulant therapy
     Dosage: 325MG
     Route: 048
  6. DONEPEZIL [Concomitant]
     Active Substance: DONEPEZIL
     Indication: Memory impairment
     Dosage: 10MG
     Route: 048
  7. MYRBETRIQ [Concomitant]
     Active Substance: MIRABEGRON
     Indication: Product used for unknown indication
     Dosage: 50MG
     Route: 048
  8. ROSUVASTATIN [Concomitant]
     Active Substance: ROSUVASTATIN
     Indication: Blood cholesterol increased
     Dosage: 20MG
     Route: 048
  9. MIDODRINE [Concomitant]
     Active Substance: MIDODRINE
     Indication: Orthostatic hypotension
     Dosage: 5MG
     Route: 048
  10. MIRALAX [Concomitant]
     Active Substance: POLYETHYLENE GLYCOL 3350
     Indication: Constipation
     Dosage: 17G/DOSE
     Route: 048
  11. VITAMIN B COMPLEX [Concomitant]
     Active Substance: CYANOCOBALAMIN\DEXPANTHENOL\NIACINAMIDE\PYRIDOXINE HYDROCHLORIDE\RIBOFLAVIN 5^-PHOSPHATE SODIUM\THIA
     Indication: Supplementation therapy
     Dosage: 1 DOSE
     Route: 048
  12. NEUPRO [Concomitant]
     Active Substance: ROTIGOTINE
     Indication: Product used for unknown indication
     Dosage: 4MG/24H
     Route: 061
  13. SINEMET [Concomitant]
     Active Substance: CARBIDOPA\LEVODOPA
     Indication: Parkinson^s disease
     Dosage: 25-100MG
     Route: 048
  14. POTASSIUM [Concomitant]
     Active Substance: POTASSIUM
     Indication: Supplementation therapy
     Dosage: 20MEQ
     Route: 048
  15. VITAMIN D2 [Concomitant]
     Active Substance: ERGOCALCIFEROL
     Indication: Supplementation therapy
     Dosage: 1250MCG
     Route: 048
  16. SINEMET [Concomitant]
     Active Substance: CARBIDOPA\LEVODOPA
     Indication: Product used for unknown indication
     Dosage: 50-200MG
     Route: 048
  17. MODERNA COVID-19 VACCINE [Concomitant]
     Active Substance: ELASOMERAN
     Indication: COVID-19 immunisation
     Route: 030
  18. MODERNA COVID-19 VACCINE [Concomitant]
     Active Substance: ELASOMERAN
     Route: 030
  19. MODERNA COVID-19 VACCINE [Concomitant]
     Active Substance: ELASOMERAN
     Route: 030

REACTIONS (4)
  - Rib fracture [Recovering/Resolving]
  - Fall [Recovered/Resolved with Sequelae]
  - Device issue [Unknown]
  - Device occlusion [Recovered/Resolved]

NARRATIVE: CASE EVENT DATE: 20211201
